FAERS Safety Report 7340566-5 (Version None)
Quarter: 2011Q1

REPORT INFORMATION
  Report Type: 
  Country: None (occurrence: None)
  Receive Date: 20110309
  Receipt Date: 20110302
  Transmission Date: 20110831
  Serious: Yes (Other)
  Sender: FDA-Public Use
  Company Number: FR-PFIZER INC-2011045244

PATIENT
  Age: 58 Year
  Sex: Female

DRUGS (2)
  1. CAMPTOSAR [Suspect]
     Indication: COLON CANCER METASTATIC
  2. ERBITUX [Suspect]
     Indication: COLON CANCER METASTATIC

REACTIONS (1)
  - OPTIC NEURITIS [None]
